FAERS Safety Report 13528018 (Version 5)
Quarter: 2018Q1

REPORT INFORMATION
  Report Type: Spontaneous
  Country: US (occurrence: US)
  Receive Date: 20170509
  Receipt Date: 20180103
  Transmission Date: 20180508
  Serious: Yes (Hospitalization, Other)
  Sender: FDA-Public Use
  Company Number: US-PFIZER INC-2017201506

PATIENT
  Age: 71 Year
  Sex: Female

DRUGS (1)
  1. XELJANZ XR [Suspect]
     Active Substance: TOFACITINIB CITRATE
     Indication: RHEUMATOID ARTHRITIS
     Dosage: 11 MG, 1X/DAY (1 TABLET, DAILY)
     Route: 048
     Dates: start: 20170410, end: 2017

REACTIONS (10)
  - Rhinorrhoea [Not Recovered/Not Resolved]
  - Nausea [Unknown]
  - Lower limb fracture [Unknown]
  - Headache [Unknown]
  - Myalgia [Unknown]
  - Diarrhoea [Not Recovered/Not Resolved]
  - Fall [Unknown]
  - Foot fracture [Unknown]
  - Muscle tightness [Unknown]
  - Concussion [Unknown]

NARRATIVE: CASE EVENT DATE: 2017
